FAERS Safety Report 10396923 (Version 3)
Quarter: 2016Q1

REPORT INFORMATION
  Report Type: Spontaneous
  Country: US (occurrence: US)
  Receive Date: 20140820
  Receipt Date: 20160202
  Transmission Date: 20160525
  Serious: No
  Sender: FDA-Public Use
  Company Number: US-UCBSA-2014008854

PATIENT
  Sex: Male
  Weight: 150 kg

DRUGS (1)
  1. KEPPRA [Suspect]
     Active Substance: LEVETIRACETAM
     Indication: SEIZURE
     Dosage: UNK
     Dates: end: 2012

REACTIONS (1)
  - Hostility [Recovered/Resolved]

NARRATIVE: CASE EVENT DATE: 2012
